FAERS Safety Report 4542048-2 (Version None)
Quarter: 2004Q4

REPORT INFORMATION
  Report Type: 
  Country: None (occurrence: None)
  Receive Date: 20041227
  Receipt Date: 20041217
  Transmission Date: 20050328
  Serious: Yes (Hospitalization, Other)
  Sender: FDA-Public Use
  Company Number: 2004114951

PATIENT
  Age: 75 Year
  Sex: Male
  Weight: 66 kg

DRUGS (7)
  1. ALDACTONE [Suspect]
     Indication: ILL-DEFINED DISORDER
     Dosage: 50 MG (DAILY), ORAL
     Route: 048
     Dates: end: 20040101
  2. NITROGLYCERIN [Concomitant]
  3. TELMISARTAN (TELMISATAN) [Concomitant]
  4. ATORVASTATIN CALCIUM [Concomitant]
  5. ACENOCOUMAROL (ACENOCOUMAROL) [Concomitant]
  6. GLICLAZIDE (GLICLAZIDE) [Concomitant]
  7. DOMPERIDONE (DOMPERIDONE) [Concomitant]

REACTIONS (2)
  - GYNAECOMASTIA [None]
  - HYPERTROPHY BREAST [None]
